FAERS Safety Report 7267562-0 (Version None)
Quarter: 2011Q1

REPORT INFORMATION
  Report Type: 
  Country: None (occurrence: None)
  Receive Date: 20110201
  Receipt Date: 20110125
  Transmission Date: 20110831
  Serious: Yes (Life-Threatening, Hospitalization)
  Sender: FDA-Public Use
  Company Number: AU-ELI_LILLY_AND_COMPANY-AU201011003568

PATIENT
  Age: 50 Year
  Sex: Female

DRUGS (4)
  1. ATACAND HCT [Concomitant]
  2. DIAMICRON [Concomitant]
  3. BYETTA [Suspect]
     Indication: TYPE 2 DIABETES MELLITUS
     Dosage: 5 UG, 2/D
     Dates: start: 20101109, end: 20101109
  4. METOPROLOL [Concomitant]

REACTIONS (2)
  - ANGIOEDEMA [None]
  - HYPOTENSION [None]
